FAERS Safety Report 11168965 (Version 1)
Quarter: 2015Q2

REPORT INFORMATION
  Report Type: Spontaneous
  Country: DE (occurrence: DE)
  Receive Date: 20150605
  Receipt Date: 20150605
  Transmission Date: 20150821
  Serious: Yes (Other)
  Sender: FDA-Public Use
  Company Number: DE-AMGEN-DEUSP2015054169

PATIENT
  Sex: Male

DRUGS (1)
  1. PROLIA [Suspect]
     Active Substance: DENOSUMAB
     Indication: PRODUCT USED FOR UNKNOWN INDICATION
     Dosage: 60 MG, UNK
     Route: 065
     Dates: start: 20150505

REACTIONS (4)
  - Nasal inflammation [Not Recovered/Not Resolved]
  - Wound infection [Unknown]
  - Purulent discharge [Unknown]
  - Back pain [Unknown]

NARRATIVE: CASE EVENT DATE: 20150508
